FAERS Safety Report 4794067-9 (Version None)
Quarter: 2005Q4

REPORT INFORMATION
  Report Type: 
  Country: None (occurrence: None)
  Receive Date: 20051006
  Receipt Date: 20050921
  Transmission Date: 20060501
  Serious: Yes (Hospitalization, Other)
  Sender: FDA-Public Use
  Company Number: 2005-US-00203

PATIENT
  Age: 64 Year
  Sex: Male

DRUGS (6)
  1. LABETALOL HCL [Suspect]
     Indication: HYPERTENSION
     Dosage: 600 MG, TID, ORAL
     Route: 048
  2. AMITRIPTYLINE HCL [Suspect]
     Dosage: 200 MG, QHS, ORAL
     Route: 048
  3. SAUTEC [Concomitant]
  4. IRBESARTAN [Concomitant]
  5. ESOMEPRAZOLE [Concomitant]
  6. MIDRODRINE [Concomitant]

REACTIONS (7)
  - ANTIDEPRESSANT DRUG LEVEL INCREASED [None]
  - CREPITATIONS [None]
  - DELIRIUM [None]
  - ELECTROCARDIOGRAM QT CORRECTED INTERVAL PROLONGED [None]
  - MYDRIASIS [None]
  - RESPIRATORY DISTRESS [None]
  - TACHYCARDIA [None]
